FAERS Safety Report 13953231 (Version 1)
Quarter: 2017Q3

REPORT INFORMATION
  Report Type: Spontaneous
  Country: US (occurrence: None)
  Receive Date: 20170908
  Receipt Date: 20170908
  Transmission Date: 20171128
  Serious: Yes (Death)
  Sender: FDA-Public Use
  Company Number: None

PATIENT
  Age: 76 Year
  Sex: Female

DRUGS (11)
  1. HYDROCHLOROTHIAZIDE. [Concomitant]
     Active Substance: HYDROCHLOROTHIAZIDE
  2. MULTIVITAMIN [Concomitant]
     Active Substance: VITAMINS
  3. ESBRIET [Suspect]
     Active Substance: PIRFENIDONE
     Indication: HYPERTENSION
     Dosage: TWO 267MG CAPSULES 3 TIMES DAILY ORALLY
     Route: 048
     Dates: start: 20160106
  4. ADVIL [Concomitant]
     Active Substance: IBUPROFEN
  5. ATENOLOL. [Concomitant]
     Active Substance: ATENOLOL
  6. DIGOXIN. [Concomitant]
     Active Substance: DIGOXIN
  7. ASPIRIN. [Concomitant]
     Active Substance: ASPIRIN
  8. CEPHALEXIN. [Concomitant]
     Active Substance: CEPHALEXIN
  9. HUMALOG [Concomitant]
     Active Substance: INSULIN LISPRO
  10. LANTUS [Concomitant]
     Active Substance: INSULIN GLARGINE
  11. VITAMIN C [Concomitant]
     Active Substance: ASCORBIC ACID

REACTIONS (1)
  - Death [None]

NARRATIVE: CASE EVENT DATE: 20170823
